FAERS Safety Report 25079145 (Version 2)
Quarter: 2025Q1

REPORT INFORMATION
  Report Type: Spontaneous
  Country: CA (occurrence: CA)
  Receive Date: 20250314
  Receipt Date: 20250318
  Transmission Date: 20250409
  Serious: Yes (Hospitalization, Other)
  Sender: Vantive US Healthcare
  Company Number: CA-VANTIVE-2025VAN001229

PATIENT
  Age: 65 Year
  Sex: Male

DRUGS (2)
  1. DIANEAL LOW CALCIUM PERITONEAL DIALYSIS SOLUTION WITH DEXTROSE [Suspect]
     Active Substance: CALCIUM CHLORIDE\DEXTROSE\MAGNESIUM CHLORIDE\SODIUM CHLORIDE\SODIUM LACTATE
     Route: 033
     Dates: end: 20250129
  2. DIANEAL LOW CALCIUM PERITONEAL DIALYSIS SOLUTION WITH DEXTROSE [Suspect]
     Active Substance: CALCIUM CHLORIDE\DEXTROSE\MAGNESIUM CHLORIDE\SODIUM CHLORIDE\SODIUM LACTATE
     Route: 033
     Dates: end: 20250129

REACTIONS (10)
  - Splenic abscess [Unknown]
  - Diverticulitis [Unknown]
  - Splenic rupture [Unknown]
  - Pain [Unknown]
  - Hallucination [Unknown]
  - Peritonitis [Not Recovered/Not Resolved]
  - Peritoneal cloudy effluent [Unknown]
  - Peritoneal effluent abnormal [Unknown]
  - Escherichia infection [Unknown]
  - Platelet disorder [Unknown]

NARRATIVE: CASE EVENT DATE: 20250116
